FAERS Safety Report 19651413 (Version 2)
Quarter: 2021Q4

REPORT INFORMATION
  Report Type: Spontaneous
  Country: US (occurrence: US)
  Receive Date: 20210803
  Receipt Date: 20211105
  Transmission Date: 20220303
  Serious: No
  Sender: FDA-Public Use
  Company Number: US-ALKERMES INC.-ALK-2021-003919

PATIENT
  Sex: Male

DRUGS (2)
  1. VIVITROL [Suspect]
     Active Substance: NALTREXONE
     Indication: Alcoholism
     Dosage: 380 MILLIGRAM, QMO
     Route: 030
     Dates: start: 20210924
  2. VIVITROL [Suspect]
     Active Substance: NALTREXONE
     Indication: Drug dependence
     Dosage: 380 MILLIGRAM, QMO
     Route: 030
     Dates: start: 202107, end: 202107

REACTIONS (2)
  - Memory impairment [Not Recovered/Not Resolved]
  - Sedation [Not Recovered/Not Resolved]
